FAERS Safety Report 24753619 (Version 1)
Quarter: 2024Q4

REPORT INFORMATION
  Report Type: Spontaneous
  Country: JP (occurrence: JP)
  Receive Date: 20241219
  Receipt Date: 20241219
  Transmission Date: 20250115
  Serious: Yes (Death)
  Sender: ROCHE
  Company Number: JP-CHUGAI-2024043406

PATIENT
  Age: 75 Year
  Sex: Male

DRUGS (1)
  1. HEMLIBRA [Suspect]
     Active Substance: EMICIZUMAB-KXWH
     Indication: Acquired haemophilia
     Dosage: 90 MILLIGRAM, ONCE/WEEK
     Route: 058
     Dates: start: 20241111, end: 20241205

REACTIONS (2)
  - Bronchopulmonary aspergillosis [Fatal]
  - Septic shock [Fatal]
